FAERS Safety Report 21558059 (Version 1)
Quarter: 2022Q4

REPORT INFORMATION
  Report Type: Spontaneous
  Country: US (occurrence: US)
  Receive Date: 20221107
  Receipt Date: 20221107
  Transmission Date: 20230113
  Serious: No
  Sender: FDA-Public Use
  Company Number: US-drreddys-SPO/USA/22/0156294

PATIENT
  Age: 18 Year

DRUGS (2)
  1. ACCUTANE [Suspect]
     Active Substance: ISOTRETINOIN
     Indication: Acne
     Dosage: RMA ISSUE DATE: 23 JUNE 2022 02:23:47 PM
  2. ACCUTANE [Suspect]
     Active Substance: ISOTRETINOIN
     Dosage: RMA ISSUE DATE: 21 JULY 2022 12:53:39 PM, 23 AUGUST 2022 12:32:04 PM, 22 SEPTEMBER 2022 09:56:49 AM

REACTIONS (2)
  - Drug ineffective [Unknown]
  - Product quality issue [Unknown]
